FAERS Safety Report 25080125 (Version 2)
Quarter: 2025Q1

REPORT INFORMATION
  Report Type: Spontaneous
  Country: DE (occurrence: DE)
  Receive Date: 20250314
  Receipt Date: 20250328
  Transmission Date: 20250408
  Serious: Yes (Hospitalization)
  Sender: SANDOZ
  Company Number: DE-002147023-NVSC2025DE040516

PATIENT
  Sex: Female
  Weight: 72.5 kg

DRUGS (3)
  1. FLUOXETINE [Suspect]
     Active Substance: FLUOXETINE HYDROCHLORIDE
     Indication: Depression
     Dosage: 20 MG, QD
     Route: 048
     Dates: start: 2007
  2. INCLISIRAN [Suspect]
     Active Substance: INCLISIRAN
     Indication: Type IIa hyperlipidaemia
     Route: 058
     Dates: start: 20231109
  3. VITAMIN D3 [Suspect]
     Active Substance: CHOLECALCIFEROL
     Indication: Product used for unknown indication
     Dosage: 20.000 IU, QW(WEEK)
     Route: 065
     Dates: start: 2020

REACTIONS (3)
  - Viral infection [Recovered/Resolved]
  - Cough [Recovered/Resolved]
  - Diarrhoea [Recovered/Resolved]

NARRATIVE: CASE EVENT DATE: 20250203
